FAERS Safety Report 17979168 (Version 3)
Quarter: 2020Q3

REPORT INFORMATION
  Report Type: Report from Study
  Country: BE (occurrence: BE)
  Receive Date: 20200703
  Receipt Date: 20200722
  Transmission Date: 20201103
  Serious: Yes (Hospitalization)
  Sender: FDA-Public Use
  Company Number: BE-JNJFOC-20200639664

PATIENT
  Age: 83 Year
  Sex: Male
  Weight: 71 kg

DRUGS (10)
  1. PROSTA URGENIN [Concomitant]
     Active Substance: SERENOA REPENS WHOLE
     Dosage: 320 MG, QD
     Dates: start: 20181018
  2. AMLODIPINE [Concomitant]
     Active Substance: AMLODIPINE BESYLATE
     Dosage: 5 MG, QD
     Dates: start: 20200310
  3. PARACETAMOL [Concomitant]
     Active Substance: ACETAMINOPHEN
     Dosage: 1000 MG, PRN
     Dates: start: 20181212
  4. ROSUVASTATIN. [Concomitant]
     Active Substance: ROSUVASTATIN
     Dosage: 20 MG, QD
     Dates: start: 20180905
  5. MONURIL [Concomitant]
     Active Substance: FOSFOMYCIN TROMETHAMINE
     Dosage: 3 MG, QD
     Dates: start: 20190118
  6. ASA [Suspect]
     Active Substance: ASPIRIN
     Indication: PRODUCT USED FOR UNKNOWN INDICATION
     Dosage: 80 MG, QD
     Route: 065
     Dates: start: 2018
  7. RIVAROXABAN [Suspect]
     Active Substance: RIVAROXABAN
     Indication: PRODUCT USED FOR UNKNOWN INDICATION
     Dosage: 2.5 MG, BID
     Route: 048
     Dates: start: 20200615, end: 20200623
  8. PANTOPRAZOL [Concomitant]
     Active Substance: PANTOPRAZOLE SODIUM
     Dosage: 40 MG, QD
     Dates: start: 2013
  9. PULMICORT TURBUHALER [Concomitant]
     Active Substance: BUDESONIDE
     Dosage: 400 UG, QD
     Dates: start: 2001
  10. SILODYX [Concomitant]
     Active Substance: SILODOSIN
     Dosage: 8 MG, QD
     Dates: start: 20190118

REACTIONS (3)
  - Lower gastrointestinal haemorrhage [Recovering/Resolving]
  - Acute myocardial infarction [Recovered/Resolved]
  - Anaemia [Recovered/Resolved]

NARRATIVE: CASE EVENT DATE: 20200620
